FAERS Safety Report 5036346-6 (Version None)
Quarter: 2006Q2

REPORT INFORMATION
  Report Type: 
  Country: None (occurrence: None)
  Receive Date: 20060601
  Receipt Date: 20050429
  Transmission Date: 20061013
  Serious: Yes (Disabling)
  Sender: FDA-Public Use
  Company Number: 384553

PATIENT
  Age: 36 Year
  Sex: Male

DRUGS (1)
  1. LARIAM [Suspect]
     Indication: PROPHYLAXIS
     Dosage: 250 MG 1 PER WEEK ORAL
     Route: 048
     Dates: start: 20010615, end: 20010615

REACTIONS (2)
  - AMNESIA [None]
  - HEADACHE [None]
